FAERS Safety Report 5632224-X (Version None)
Quarter: 2008Q1

REPORT INFORMATION
  Report Type: 
  Country: None (occurrence: None)
  Receive Date: 20080220
  Receipt Date: 20080211
  Transmission Date: 20080703
  Serious: Yes (Hospitalization)
  Sender: FDA-Public Use
  Company Number: AU-ABBOTT-07P-008-0373509-00

PATIENT
  Sex: Male
  Weight: 90 kg

DRUGS (2)
  1. KALETRA [Suspect]
     Indication: HIV INFECTION
     Route: 048
     Dates: start: 20051026
  2. ABACAVIR SULFATE W/LAMIVUDINE [Concomitant]
     Indication: HIV INFECTION
     Dates: start: 20070330

REACTIONS (3)
  - BACTERIAL PYELONEPHRITIS [None]
  - INGUINAL HERNIA [None]
  - ORCHITIS [None]
